FAERS Safety Report 18590647 (Version 1)
Quarter: 2020Q4

REPORT INFORMATION
  Report Type: Spontaneous
  Country: CN (occurrence: CN)
  Receive Date: 20201208
  Receipt Date: 20201208
  Transmission Date: 20210114
  Serious: Yes (Hospitalization, Other)
  Sender: FDA-Public Use
  Company Number: CN-ASTRAZENECA-2020SF60705

PATIENT
  Age: 71 Year
  Sex: Male

DRUGS (5)
  1. CARBOPLATIN. [Concomitant]
     Active Substance: CARBOPLATIN
     Dosage: 500 MG D2
     Route: 065
  2. BEVACIZUMAB. [Concomitant]
     Active Substance: BEVACIZUMAB
     Route: 065
  3. IRESSA [Suspect]
     Active Substance: GEFITINIB
     Indication: LUNG ADENOCARCINOMA
     Route: 048
     Dates: start: 201812
  4. TAGRISSO [Suspect]
     Active Substance: OSIMERTINIB
     Indication: LUNG ADENOCARCINOMA
     Route: 048
  5. DOCETAXEL. [Concomitant]
     Active Substance: DOCETAXEL
     Dosage: 130 MG D1
     Route: 065

REACTIONS (10)
  - Metastases to liver [Unknown]
  - Metastases to chest wall [Unknown]
  - Malignant neoplasm progression [Unknown]
  - Cough [Unknown]
  - Productive cough [Unknown]
  - Pleural effusion [Unknown]
  - Metastases to bone [Unknown]
  - Chest pain [Unknown]
  - Drug resistance [Unknown]
  - Chest discomfort [Unknown]

NARRATIVE: CASE EVENT DATE: 201903
